FAERS Safety Report 4343222-0 (Version None)
Quarter: 2004Q1

REPORT INFORMATION
  Report Type: 
  Country: None (occurrence: None)
  Receive Date: 20040325
  Receipt Date: 20040211
  Transmission Date: 20041129
  Serious: No
  Sender: FDA-Public Use
  Company Number: USA030844875

PATIENT
  Age: 77 Year
  Sex: Female

DRUGS (5)
  1. FORTEO [Suspect]
     Indication: OSTEOPOROSIS
     Dosage: 20 UG/DAY
     Dates: start: 20030814
  2. VITAMIN B-12 [Concomitant]
  3. PROCRIT (ERYTHROPOIETIN) [Concomitant]
  4. PREVACID [Concomitant]
  5. ATACAND [Concomitant]

REACTIONS (6)
  - ANOREXIA [None]
  - ASTHENIA [None]
  - NAUSEA [None]
  - NIGHT CRAMPS [None]
  - RESPIRATORY DISORDER [None]
  - WEIGHT DECREASED [None]
